FAERS Safety Report 20712752 (Version 1)
Quarter: 2022Q2

REPORT INFORMATION
  Report Type: Spontaneous
  Country: FR (occurrence: FR)
  Receive Date: 20220415
  Receipt Date: 20220415
  Transmission Date: 20220720
  Serious: Yes (Other)
  Sender: FDA-Public Use
  Company Number: FR-AFSSAPS-PC20220682

PATIENT
  Age: 38 Year
  Sex: Male

DRUGS (5)
  1. PREGABALIN [Interacting]
     Active Substance: PREGABALIN
     Indication: Neuralgia
     Dosage: UNK
     Route: 065
  2. TRAMADOL [Interacting]
     Active Substance: TRAMADOL
     Indication: Neuralgia
     Dosage: ()
     Route: 065
  3. CANNABIDIOL [Suspect]
     Active Substance: CANNABIDIOL
     Indication: Neuralgia
     Dosage: ^BALANCED^ ORAL OIL: 25 MG/ML THC + 25 MG/ML CBDTARGET DOSES: 20MG THC + 20 MG CBDTITRATI...
     Route: 048
     Dates: start: 20211011, end: 20211108
  4. CANNABIDIOL [Suspect]
     Active Substance: CANNABIDIOL
     Indication: Neuralgia
     Dosage: ^BALANCED^ ORAL OIL: 25 MG/ML THC + 25 MG/ML CBDTARGET DOSES: 17.5 MG THC + 17.5 MG CBD ()
     Route: 048
     Dates: start: 20211109, end: 20211206
  5. AMITRIPTYLINE [Interacting]
     Active Substance: AMITRIPTYLINE
     Indication: Product used for unknown indication
     Dosage: UNK
     Route: 065

REACTIONS (8)
  - Vomiting [Unknown]
  - Psychomotor skills impaired [Unknown]
  - Nausea [Unknown]
  - Palpitations [Unknown]
  - Balance disorder [Unknown]
  - Disturbance in attention [Unknown]
  - Dizziness [Unknown]
  - Confusional state [Unknown]
